FAERS Safety Report 8487745-1 (Version None)
Quarter: 2012Q3

REPORT INFORMATION
  Report Type: 
  Country: None (occurrence: None)
  Receive Date: 20120705
  Receipt Date: 20120626
  Transmission Date: 20120928
  Serious: Yes (Other)
  Sender: FDA-Public Use
  Company Number: US-BAYER-2012-038220

PATIENT
  Age: 32 Year
  Sex: Female
  Weight: 81.633 kg

DRUGS (9)
  1. CEPHALEXIN [Concomitant]
     Dosage: 500 MG, UNK
     Route: 048
     Dates: start: 20080709
  2. MULTIPLE VITAMINS [Concomitant]
     Route: 048
  3. METHYLPREDNISOLONE [Concomitant]
     Dosage: 4 MG,DOSE PACKS
     Route: 048
     Dates: start: 20080630
  4. YAZ [Suspect]
     Indication: PREMENSTRUAL SYNDROME
  5. YAZ [Suspect]
     Indication: CONTRACEPTION
     Dosage: UNK
     Dates: start: 20070801, end: 20080701
  6. NAPROXEN [Concomitant]
     Dosage: 500 MG, UNK
     Route: 048
     Dates: start: 20080709
  7. YAZ [Suspect]
     Indication: CYST
  8. PIROXICAM [Concomitant]
     Indication: EXOSTOSIS
     Dosage: 20 MG, UNK
     Route: 048
     Dates: start: 20080630
  9. ZYRTEC [Concomitant]
     Route: 048

REACTIONS (9)
  - EMOTIONAL DISTRESS [None]
  - PAIN [None]
  - THROMBOPHLEBITIS SUPERFICIAL [None]
  - DEPRESSION [None]
  - PAIN IN EXTREMITY [None]
  - FEAR OF DEATH [None]
  - NERVOUSNESS [None]
  - OEDEMA PERIPHERAL [None]
  - INJURY [None]
